FAERS Safety Report 5192674-5 (Version None)
Quarter: 2006Q4

REPORT INFORMATION
  Report Type: 
  Country: None (occurrence: None)
  Receive Date: 20061228
  Receipt Date: 20061219
  Transmission Date: 20070319
  Serious: Yes (Other)
  Sender: FDA-Public Use
  Company Number: US-BAYER-200615049BCC

PATIENT
  Age: 56 Year
  Sex: Female
  Weight: 91 kg

DRUGS (2)
  1. ALEVE [Suspect]
     Indication: HEADACHE
     Route: 048
     Dates: start: 19960101
  2. ADVIL [Concomitant]

REACTIONS (2)
  - BRAIN OEDEMA [None]
  - SKIN DISCOLOURATION [None]
